FAERS Safety Report 5946695-2 (Version None)
Quarter: 2008Q4

REPORT INFORMATION
  Report Type: 
  Country: None (occurrence: None)
  Receive Date: 20081110
  Receipt Date: 20080915
  Transmission Date: 20090506
  Serious: No
  Sender: FDA-Public Use
  Company Number: A0747500A

PATIENT
  Sex: Female

DRUGS (5)
  1. ALTABAX [Suspect]
     Dosage: 1APP SINGLE DOSE
     Route: 061
     Dates: start: 20080912
  2. SPIRIVA [Concomitant]
  3. THYROID MEDICATION [Concomitant]
  4. ASPIRIN [Concomitant]
     Dosage: 81MG UNKNOWN
  5. ZESTRIL [Concomitant]

REACTIONS (1)
  - APPLICATION SITE PAIN [None]
